FAERS Safety Report 6431131-2 (Version None)
Quarter: 2009Q4

REPORT INFORMATION
  Report Type: 
  Country: None (occurrence: None)
  Receive Date: 20091103
  Receipt Date: 20091019
  Transmission Date: 20100525
  Serious: Yes (Hospitalization)
  Sender: FDA-Public Use
  Company Number: 001077

PATIENT
  Age: 73 Year
  Sex: Male
  Weight: 52.7 kg

DRUGS (10)
  1. PLETAL [Suspect]
     Indication: CEREBRAL INFARCTION
     Dosage: 100 MG,BID ORAL
     Route: 048
     Dates: start: 20060719, end: 20080508
  2. DIOVAN [Concomitant]
  3. BASEN OD (VOGLIBOSE) TABLET [Concomitant]
  4. GLIMICRON (GLICLAZIDE) TABLET [Concomitant]
  5. LASIX [Concomitant]
  6. DOXAZOSIN MESYLATE [Concomitant]
  7. ALDOMET (METHYLDOPA) TABLET [Concomitant]
  8. ADALAT-CR (NIFEDIPINE) TABLET [Concomitant]
  9. CARVEDILOL [Concomitant]
  10. ADALAT L (NIFEDIPINE) TABLET [Concomitant]

REACTIONS (10)
  - BLOOD GLUCOSE INCREASED [None]
  - BLOOD PRESSURE SYSTOLIC INCREASED [None]
  - BLOOD URIC ACID INCREASED [None]
  - BRAIN CANCER METASTATIC [None]
  - BRAIN NEOPLASM [None]
  - CEREBRAL INFARCTION [None]
  - GAMMA-GLUTAMYLTRANSFERASE INCREASED [None]
  - INTERSTITIAL LUNG DISEASE [None]
  - INTRACRANIAL TUMOUR HAEMORRHAGE [None]
  - LUNG ADENOCARCINOMA [None]
